FAERS Safety Report 4472064-0 (Version None)
Quarter: 2004Q4

REPORT INFORMATION
  Report Type: 
  Country: None (occurrence: None)
  Receive Date: 20041012
  Receipt Date: 20040929
  Transmission Date: 20050328
  Serious: Yes (Other)
  Sender: FDA-Public Use
  Company Number: 2004071807

PATIENT
  Age: 26 Year
  Sex: Male
  Weight: 86.1834 kg

DRUGS (1)
  1. BEN-GAY ULTRA (CAMPHOR, MENTHOL, METHYL SALICYLATE) [Suspect]
     Indication: INJURY
     Dosage: SMALL AMOUNT, ONCE, LEFT EYE, OPHTHALMIC
     Route: 047
     Dates: start: 20040926, end: 20040926

REACTIONS (8)
  - ACCIDENTAL EXPOSURE [None]
  - CAUSTIC INJURY [None]
  - CONJUNCTIVITIS [None]
  - CORNEAL ABRASION [None]
  - EYE INFECTION [None]
  - GLAUCOMA [None]
  - MEDICATION ERROR [None]
  - NERVE INJURY [None]
